FAERS Safety Report 21232578 (Version 1)
Quarter: 2022Q3

REPORT INFORMATION
  Report Type: Spontaneous
  Country: US (occurrence: None)
  Receive Date: 20220818
  Receipt Date: 20220818
  Transmission Date: 20221027
  Serious: No
  Sender: FDA-Public Use
  Company Number: None

PATIENT
  Age: 50 Year
  Sex: Female
  Weight: 78.93 kg

DRUGS (12)
  1. IBRANCE [Suspect]
     Active Substance: PALBOCICLIB
     Indication: Breast cancer female
     Dosage: OTHER FREQUENCY :3 WEEKS ON 1 WEEK OFF?
     Route: 048
     Dates: start: 202208
  2. ACETAMINOPHEN [Concomitant]
     Active Substance: ACETAMINOPHEN
  3. CLARITIN [Concomitant]
     Active Substance: LORATADINE
  4. EXEMESTANE [Concomitant]
     Active Substance: EXEMESTANE
  5. JULUCA [Concomitant]
     Active Substance: DOLUTEGRAVIR SODIUM\RILPIVIRINE HYDROCHLORIDE
  6. CALCIUM\VITAMIN D [Concomitant]
     Active Substance: CALCIUM\VITAMIN D
  7. MAGNESIUM CHLORIDE [Concomitant]
     Active Substance: MAGNESIUM CHLORIDE
  8. VITAMINS [Concomitant]
     Active Substance: VITAMINS
  9. QC B-COmplex/Vitamin C [Concomitant]
  10. TRAZODONE HCL [Concomitant]
     Active Substance: TRAZODONE HYDROCHLORIDE
  11. VENLAFAXINE HCL [Concomitant]
     Active Substance: VENLAFAXINE HYDROCHLORIDE
  12. VITAMIN D3 [Concomitant]
     Active Substance: CHOLECALCIFEROL

REACTIONS (1)
  - Neutropenia [None]
